FAERS Safety Report 7581750-5 (Version None)
Quarter: 2011Q2

REPORT INFORMATION
  Report Type: 
  Country: None (occurrence: None)
  Receive Date: 20110629
  Receipt Date: 20110623
  Transmission Date: 20111010
  Serious: Yes (Hospitalization, Other)
  Sender: FDA-Public Use
  Company Number: PL-PFIZER INC-2011099560

PATIENT
  Sex: Male
  Weight: 70 kg

DRUGS (6)
  1. VENLAFAXINE [Suspect]
     Dosage: UNK
     Dates: start: 20060101, end: 20110518
  2. EFFEXOR XR [Suspect]
     Dosage: 150 MG, UNK
     Dates: start: 20110519
  3. VENLAFAXINE [Suspect]
     Dosage: UNK
     Dates: start: 20060101, end: 20110518
  4. CARBAMAZEPINE [Concomitant]
     Dosage: 300 UNK, UNK
     Route: 048
     Dates: start: 20050401
  5. VENLAFAXINE [Suspect]
     Dosage: UNK
     Dates: start: 20060101, end: 20110518
  6. EFFEXOR XR [Suspect]
     Dosage: 225 MG, UNK
     Dates: start: 20050210, end: 20051231

REACTIONS (7)
  - SLEEP DISORDER [None]
  - VISUAL IMPAIRMENT [None]
  - BLOOD CHOLESTEROL INCREASED [None]
  - DECREASED ACTIVITY [None]
  - COGNITIVE DISORDER [None]
  - DEPRESSION [None]
  - SELF ESTEEM DECREASED [None]
